FAERS Safety Report 10081586 (Version 1)
Quarter: 2014Q2

REPORT INFORMATION
  Report Type: Spontaneous
  Country: SE (occurrence: SE)
  Receive Date: 20140416
  Receipt Date: 20140416
  Transmission Date: 20141212
  Serious: Yes (Other)
  Sender: FDA-Public Use
  Company Number: SE-PFIZER INC-2014105994

PATIENT
  Age: 63 Year
  Sex: Female

DRUGS (1)
  1. DOLCONTIN [Suspect]
     Indication: SPINAL PAIN
     Dosage: UNK
     Dates: end: 20140117

REACTIONS (1)
  - Renal failure [Unknown]
